FAERS Safety Report 25956006 (Version 1)
Quarter: 2025Q4

REPORT INFORMATION
  Report Type: Spontaneous
  Country: EU (occurrence: EU)
  Receive Date: 20251024
  Receipt Date: 20251024
  Transmission Date: 20260117
  Serious: Yes (Other)
  Sender: AMGEN
  Company Number: EU-AMGEN-FRASP2025209355

PATIENT
  Age: 51 Year
  Sex: Male
  Weight: 73 kg

DRUGS (1)
  1. PANITUMUMAB [Suspect]
     Active Substance: PANITUMUMAB
     Indication: Rectal adenocarcinoma
     Dosage: 6 MILLIGRAM/KILOGRAM, Q2WK
     Route: 040
     Dates: start: 20241209, end: 20250217

REACTIONS (1)
  - Reactive perforating collagenosis [Recovering/Resolving]

NARRATIVE: CASE EVENT DATE: 20241216
